FAERS Safety Report 9136962 (Version 1)
Quarter: 2013Q1

REPORT INFORMATION
  Report Type: Spontaneous
  Country: US (occurrence: US)
  Receive Date: 20130304
  Receipt Date: 20130304
  Transmission Date: 20140127
  Serious: No
  Sender: FDA-Public Use
  Company Number: US-ABBOTT-12P-163-0914054-00

PATIENT
  Sex: Male
  Weight: 61.29 kg

DRUGS (13)
  1. ANDROGEL 1% [Suspect]
     Indication: BLOOD TESTOSTERONE DECREASED
     Route: 061
     Dates: start: 201006, end: 201007
  2. ANDROGEL 1% [Suspect]
     Route: 061
     Dates: start: 201006, end: 201006
  3. ANDROGEL 1% [Suspect]
     Route: 061
     Dates: start: 201007, end: 201007
  4. ANDROGEL 1% [Suspect]
     Route: 061
     Dates: start: 201007, end: 201008
  5. ANDROGEL 1% [Suspect]
     Route: 061
     Dates: start: 201008, end: 201009
  6. ANDROGEL 1% [Suspect]
     Route: 061
     Dates: start: 201009, end: 201012
  7. ANDROGEL 1% [Suspect]
     Route: 061
     Dates: start: 201009, end: 201009
  8. ANDROGEL 1% [Suspect]
     Route: 061
  9. PAXIL [Suspect]
     Indication: DEPRESSION
  10. KLONOPIN [Suspect]
     Indication: DYSTONIA
  11. ADVAIR [Concomitant]
     Indication: ASTHMA
  12. ACIPHEX [Concomitant]
     Indication: GASTROOESOPHAGEAL REFLUX DISEASE
  13. ZEGRID [Concomitant]
     Indication: GASTROOESOPHAGEAL REFLUX DISEASE

REACTIONS (7)
  - Insomnia [Recovered/Resolved]
  - Anger [Recovered/Resolved]
  - Blood testosterone decreased [Recovered/Resolved]
  - Blood testosterone increased [Recovered/Resolved]
  - Asthenia [Recovering/Resolving]
  - Dystonia [Recovering/Resolving]
  - Muscular weakness [Recovering/Resolving]
